FAERS Safety Report 4695732-4 (Version None)
Quarter: 2005Q2

REPORT INFORMATION
  Report Type: 
  Country: None (occurrence: None)
  Receive Date: 20050615
  Receipt Date: 20050615
  Transmission Date: 20051028
  Serious: Yes (Hospitalization)
  Sender: FDA-Public Use
  Company Number: None

PATIENT
  Age: 66 Year
  Sex: Female

DRUGS (2)
  1. PANGLOBULIN [Suspect]
     Indication: GUILLAIN-BARRE SYNDROME
     Dosage: 25 GRAMS IV QD
     Route: 042
     Dates: start: 20030425, end: 20030429
  2. PANGLOBULIN [Suspect]

REACTIONS (1)
  - CEREBROVASCULAR ACCIDENT [None]
